FAERS Safety Report 7466022-1 (Version None)
Quarter: 2011Q2

REPORT INFORMATION
  Report Type: 
  Country: None (occurrence: None)
  Receive Date: 20110509
  Receipt Date: 20100603
  Transmission Date: 20111010
  Serious: No
  Sender: FDA-Public Use
  Company Number: US-ALEXION-A201000636

PATIENT
  Sex: Male
  Weight: 115 kg

DRUGS (8)
  1. FOLIC ACID [Concomitant]
  2. DANAZOL [Suspect]
     Dosage: 200 MG, QD
     Dates: start: 20100415, end: 20100801
  3. SOLIRIS [Suspect]
     Dosage: 1200 MG, Q12D
     Route: 042
     Dates: start: 20100523
  4. SOLIRIS [Suspect]
     Indication: PAROXYSMAL NOCTURNAL HAEMOGLOBINURIA
     Dosage: 600 MG, QW
     Route: 042
     Dates: start: 20090709, end: 20090730
  5. PERCOCET [Concomitant]
  6. SOLIRIS [Suspect]
     Dosage: 900 MG, Q2W
     Route: 042
     Dates: start: 20090806, end: 20100511
  7. DANAZOL [Suspect]
     Dosage: 200 MG, BID
     Dates: start: 20100204, end: 20100414
  8. IRON [Concomitant]

REACTIONS (10)
  - HAEMOLYSIS [None]
  - INCREASED APPETITE [None]
  - ASTHENIA [None]
  - HEADACHE [None]
  - HAEMATOCRIT DECREASED [None]
  - FATIGUE [None]
  - DIARRHOEA [None]
  - DEPRESSION [None]
  - WEIGHT INCREASED [None]
  - BACK PAIN [None]
